FAERS Safety Report 8217655-6 (Version None)
Quarter: 2012Q1

REPORT INFORMATION
  Report Type: 
  Country: None (occurrence: None)
  Receive Date: 20120315
  Receipt Date: 20120302
  Transmission Date: 20120608
  Serious: Yes (Death, Hospitalization, Other)
  Sender: FDA-Public Use
  Company Number: 2012P1009014

PATIENT
  Age: 71 Year
  Sex: Male

DRUGS (2)
  1. ISONIAZID TAB [Concomitant]
  2. PREDNISOLONE [Suspect]
     Indication: POLYMYALGIA RHEUMATICA

REACTIONS (10)
  - HEPATIC NEOPLASM [None]
  - HEPATIC FAILURE [None]
  - LACTIC ACIDOSIS [None]
  - ENCEPHALOPATHY [None]
  - DISEASE RECURRENCE [None]
  - WEIGHT DECREASED [None]
  - HEPATIC CIRRHOSIS [None]
  - HEPATORENAL SYNDROME [None]
  - FIBROSIS [None]
  - HEPATITIS B [None]
